FAERS Safety Report 6056206-1 (Version None)
Quarter: 2009Q1

REPORT INFORMATION
  Report Type: 
  Country: None (occurrence: None)
  Receive Date: 20090129
  Receipt Date: 20090121
  Transmission Date: 20090719
  Serious: Yes (Death)
  Sender: FDA-Public Use
  Company Number: US-JNJFOC-20090105444

PATIENT
  Sex: Female
  Weight: 51.71 kg

DRUGS (8)
  1. FENTANYL-75 [Suspect]
     Indication: DRUG USE FOR UNKNOWN INDICATION
     Dosage: TOTAL OF (4) 75 UG/HR PATCHES USED PER DOSE
     Route: 062
  2. FLUOXETINE HCL [Concomitant]
  3. DEXTROMETHORPHAN HYDROBROMIDE [Concomitant]
  4. MECLIZINE [Concomitant]
  5. DIAZEPAM [Concomitant]
  6. ETHANOL [Concomitant]
  7. ISOPROPYL ALCOHOL COMPOUND LIQUID [Concomitant]
  8. ACETONE [Concomitant]

REACTIONS (2)
  - DRUG TOXICITY [None]
  - VICTIM OF HOMICIDE [None]
